FAERS Safety Report 9233508 (Version 3)
Quarter: 2013Q2

REPORT INFORMATION
  Report Type: Report from Study
  Country: US (occurrence: US)
  Receive Date: 20130416
  Receipt Date: 20130610
  Transmission Date: 20140414
  Serious: Yes (Other)
  Sender: FDA-Public Use
  Company Number: US-JNJFOC-20130403664

PATIENT
  Sex: Male

DRUGS (6)
  1. REMICADE [Suspect]
     Indication: RHEUMATOID ARTHRITIS
     Route: 042
     Dates: start: 201007
  2. INHALERS UNSPECIFIED [Suspect]
     Indication: RESPIRATORY DISORDER
     Route: 065
  3. METHOTREXATE [Concomitant]
     Indication: RHEUMATOID ARTHRITIS
     Route: 065
     Dates: start: 201007
  4. FOLIC ACID [Concomitant]
     Route: 065
     Dates: start: 201007
  5. SAW PALMETTO [Concomitant]
     Indication: PROSTATIC DISORDER
     Route: 065
     Dates: start: 201303
  6. MOVE FREE [Concomitant]
     Indication: ARTHROPATHY
     Route: 065

REACTIONS (7)
  - Respiratory disorder [Recovered/Resolved]
  - Weight increased [Recovered/Resolved]
  - Decreased appetite [Recovered/Resolved]
  - Muscle spasms [Recovered/Resolved]
  - Joint lock [Recovered/Resolved]
  - Muscle spasms [Recovered/Resolved]
  - Weight decreased [Recovered/Resolved]
